FAERS Safety Report 22184626 (Version 3)
Quarter: 2023Q2

REPORT INFORMATION
  Report Type: Report from Study
  Country: JP (occurrence: JP)
  Receive Date: 20230407
  Receipt Date: 20230516
  Transmission Date: 20230721
  Serious: Yes (Hospitalization)
  Sender: FDA-Public Use
  Company Number: JP-JNJFOC-20230401548

PATIENT
  Age: 76 Year
  Sex: Female
  Weight: 54.9 kg

DRUGS (14)
  1. IMBRUVICA [Suspect]
     Active Substance: IBRUTINIB
     Indication: Chronic lymphocytic leukaemia recurrent
     Route: 048
     Dates: start: 20190311, end: 20190603
  2. SULFAMETHOXAZOLE\TRIMETHOPRIM [Concomitant]
     Active Substance: SULFAMETHOXAZOLE\TRIMETHOPRIM
     Indication: Prophylaxis
     Dosage: DOSE UNKNOWN
     Route: 048
     Dates: start: 20200602, end: 20220501
  3. SULFAMETHOXAZOLE\TRIMETHOPRIM [Concomitant]
     Active Substance: SULFAMETHOXAZOLE\TRIMETHOPRIM
     Indication: Prophylaxis
     Dosage: DOSE UNKNOWN
     Route: 048
     Dates: start: 20200602, end: 20220501
  4. SULFAMETHOXAZOLE\TRIMETHOPRIM [Concomitant]
     Active Substance: SULFAMETHOXAZOLE\TRIMETHOPRIM
     Indication: Prophylaxis
     Dosage: DOSE UNKNOWN
     Route: 048
     Dates: start: 20190603, end: 20190610
  5. SULFAMETHOXAZOLE\TRIMETHOPRIM [Concomitant]
     Active Substance: SULFAMETHOXAZOLE\TRIMETHOPRIM
     Indication: Prophylaxis
     Dosage: DOSE UNKNOWN
     Route: 048
     Dates: start: 20190611, end: 20191018
  6. PREDONINE [Concomitant]
     Active Substance: PREDNISOLONE
     Indication: Pulmonary toxicity
     Route: 048
     Dates: start: 20190903, end: 20190930
  7. PREDONINE [Concomitant]
     Active Substance: PREDNISOLONE
     Indication: Pulmonary toxicity
     Route: 048
     Dates: start: 20190709, end: 20190805
  8. PREDONINE [Concomitant]
     Active Substance: PREDNISOLONE
     Indication: Pulmonary toxicity
     Route: 048
     Dates: start: 20191001, end: 20191028
  9. PREDONINE [Concomitant]
     Active Substance: PREDNISOLONE
     Indication: Pulmonary toxicity
     Route: 048
     Dates: start: 20190617, end: 20190623
  10. PREDONINE [Concomitant]
     Active Substance: PREDNISOLONE
     Indication: Pulmonary toxicity
     Route: 048
     Dates: start: 20190603, end: 20190609
  11. PREDONINE [Concomitant]
     Active Substance: PREDNISOLONE
     Indication: Pulmonary toxicity
     Route: 048
     Dates: start: 20190610, end: 20190616
  12. PREDONINE [Concomitant]
     Active Substance: PREDNISOLONE
     Indication: Pulmonary toxicity
     Route: 048
     Dates: start: 20190806, end: 20190902
  13. PREDONINE [Concomitant]
     Active Substance: PREDNISOLONE
     Indication: Pulmonary toxicity
     Route: 048
     Dates: start: 20190625, end: 20190708
  14. PREDONINE [Concomitant]
     Active Substance: PREDNISOLONE
     Indication: Pulmonary toxicity
     Route: 048
     Dates: start: 20190624, end: 20190624

REACTIONS (1)
  - Pulmonary toxicity [Recovered/Resolved]

NARRATIVE: CASE EVENT DATE: 20190523
